FAERS Safety Report 6762885-3 (Version None)
Quarter: 2010Q2

REPORT INFORMATION
  Report Type: 
  Country: None (occurrence: None)
  Receive Date: 20100609
  Receipt Date: 20100531
  Transmission Date: 20101027
  Serious: Yes (Other)
  Sender: FDA-Public Use
  Company Number: JP-PFIZER INC-2010068114

PATIENT

DRUGS (4)
  1. DOXAZOSIN MESYLATE [Suspect]
  2. OLMETEC [Suspect]
  3. ZYLORIC [Suspect]
  4. BEZAFIBRATE [Suspect]

REACTIONS (2)
  - BLOOD CREATININE INCREASED [None]
  - BLOOD POTASSIUM INCREASED [None]
